FAERS Safety Report 18365219 (Version 1)
Quarter: 2020Q3

REPORT INFORMATION
  Report Type: Spontaneous
  Country: US (occurrence: US)
  Receive Date: 20200928
  Receipt Date: 20200928
  Transmission Date: 20201103
  Serious: Yes (Other)
  Sender: FDA-Public Use
  Company Number: None

PATIENT
  Age: 4 Decade

DRUGS (3)
  1. FAVIPIRAVIR [Suspect]
     Active Substance: FAVIPIRAVIR
     Indication: COVID-19
     Dates: start: 2020
  2. CEFTRIAXONE. [Suspect]
     Active Substance: CEFTRIAXONE
     Dates: start: 2020
  3. AZITHROMYCIN ANHYDROUS. [Suspect]
     Active Substance: AZITHROMYCIN ANHYDROUS
     Dates: start: 2020

REACTIONS (9)
  - Hyperhidrosis [None]
  - Delirium [None]
  - Neuroleptic malignant syndrome [None]
  - Off label use [None]
  - Altered state of consciousness [None]
  - Acute kidney injury [None]
  - Blood creatine phosphokinase increased [None]
  - Tachycardia [None]
  - Tachypnoea [None]
